FAERS Safety Report 5578982-4 (Version None)
Quarter: 2007Q4

REPORT INFORMATION
  Report Type: 
  Country: None (occurrence: None)
  Receive Date: 20071228
  Receipt Date: 20071221
  Transmission Date: 20080405
  Serious: Yes (Other)
  Sender: FDA-Public Use
  Company Number: 2007-05905

PATIENT
  Age: 76 Year
  Sex: Male

DRUGS (5)
  1. FIORICET [Suspect]
     Indication: HEADACHE
     Dosage: 1.5 -2G, DAILY X 20 YRS, ORAL
     Route: 048
  2. SULINDAC [Suspect]
     Indication: GOUT
     Dosage: 150 MG, BID X 5 DAYS, ORAL
     Route: 048
  3. ACETYLSALICYLIC ACID SRT [Suspect]
     Indication: HEADACHE
     Dosage: 2 G, DAILY X 20 YRS, ORAL
     Route: 048
  4. ALLOPURINOL [Concomitant]
  5. COLCHICINE [Concomitant]

REACTIONS (3)
  - KIDNEY FIBROSIS [None]
  - NEPHROPATHY TOXIC [None]
  - RENAL ATROPHY [None]
